FAERS Safety Report 17499993 (Version 1)
Quarter: 2020Q1

REPORT INFORMATION
  Report Type: Spontaneous
  Country: US (occurrence: US)
  Receive Date: 20200304
  Receipt Date: 20200304
  Transmission Date: 20200409
  Serious: Yes (Life-Threatening, Hospitalization)
  Sender: FDA-Public Use
  Company Number: US-SUN PHARMACEUTICAL INDUSTRIES LTD-2020R1-238804

PATIENT
  Age: 25 Year
  Sex: Male

DRUGS (5)
  1. LIGANDROL [Suspect]
     Active Substance: VK-5211
     Indication: SUPPLEMENTATION THERAPY
     Dosage: UNK
     Route: 065
  2. IBUPROFEN. [Suspect]
     Active Substance: IBUPROFEN
     Indication: MYALGIA
     Dosage: 1600-2400 MG IN A DAY FOR 12 DAYS PER MONTH
     Route: 065
  3. CLOMIPHENE [Suspect]
     Active Substance: CLOMIPHENE
     Indication: SUPPLEMENTATION THERAPY
     Dosage: UNK
     Route: 065
  4. IBUTAMOREN. [Suspect]
     Active Substance: IBUTAMOREN
     Indication: SUPPLEMENTATION THERAPY
     Dosage: UNK
     Route: 065
  5. CREATINE [Suspect]
     Active Substance: CREATINE
     Indication: SUPPLEMENTATION THERAPY
     Dosage: UNK
     Route: 065

REACTIONS (5)
  - Overdose [Unknown]
  - Cold type haemolytic anaemia [Recovering/Resolving]
  - Hepatitis cholestatic [Recovering/Resolving]
  - Seizure [Unknown]
  - Epstein-Barr virus infection [Unknown]
